FAERS Safety Report 17898984 (Version 2)
Quarter: 2020Q2

REPORT INFORMATION
  Report Type: Spontaneous
  Country: US (occurrence: US)
  Receive Date: 20200615
  Receipt Date: 20200616
  Transmission Date: 20200714
  Serious: No
  Sender: FDA-Public Use
  Company Number: US-TEVA-2020-US-1247567

PATIENT
  Sex: Female

DRUGS (1)
  1. BUPRENORPHINE TEVA [Suspect]
     Active Substance: BUPRENORPHINE
     Route: 062

REACTIONS (6)
  - Product adhesion issue [Unknown]
  - Application site discomfort [Not Recovered/Not Resolved]
  - Skin injury [Not Recovered/Not Resolved]
  - Product substitution issue [Unknown]
  - Application site pain [Not Recovered/Not Resolved]
  - Wrong technique in product usage process [Unknown]
